FAERS Safety Report 21688564 (Version 2)
Quarter: 2022Q4

REPORT INFORMATION
  Report Type: Spontaneous
  Country: US (occurrence: US)
  Receive Date: 20221206
  Receipt Date: 20221208
  Transmission Date: 20230113
  Serious: Yes (Hospitalization)
  Sender: FDA-Public Use
  Company Number: US-PFIZER INC-202201350184

PATIENT
  Age: 78 Year
  Sex: Male

DRUGS (2)
  1. CELONTIN [Suspect]
     Active Substance: METHSUXIMIDE
     Dosage: UNK
  2. CELONTIN [Suspect]
     Active Substance: METHSUXIMIDE
     Dosage: 300 MG, 2X/DAY
     Route: 048

REACTIONS (1)
  - COVID-19 [Unknown]
